FAERS Safety Report 4947692-6 (Version None)
Quarter: 2006Q1

REPORT INFORMATION
  Report Type: 
  Country: None (occurrence: None)
  Receive Date: 20060313
  Receipt Date: 20060303
  Transmission Date: 20060701
  Serious: Yes (Hospitalization, Other)
  Sender: FDA-Public Use
  Company Number: 2006-02-1118

PATIENT
  Age: 36 Year
  Sex: Female

DRUGS (4)
  1. AERIUS TABLETS (DESLORATADINE) [Suspect]
     Indication: HYPERSENSITIVITY
     Dosage: 10 MG QD ORAL
     Route: 048
  2. SOLU-DECORTIN-H (PREDNISOLONE) [Concomitant]
  3. DECORTIN [Concomitant]
  4. TAVEGIL [Concomitant]

REACTIONS (1)
  - HEPATOTOXICITY [None]
